FAERS Safety Report 17694597 (Version 3)
Quarter: 2020Q3

REPORT INFORMATION
  Report Type: Report from Study
  Country: CN (occurrence: CN)
  Receive Date: 20200422
  Receipt Date: 20200923
  Transmission Date: 20201102
  Serious: Yes (Other)
  Sender: FDA-Public Use
  Company Number: NVSC2020CN092625

PATIENT
  Age: 77 Year
  Sex: Male

DRUGS (8)
  1. ENTRESTO [Suspect]
     Active Substance: SACUBITRIL\VALSARTAN
     Indication: CARDIAC FAILURE CHRONIC
     Dosage: 100 MG, UNKNOWN
     Route: 048
     Dates: start: 20190916
  2. METFORMIN HYDROCHLORIDE. [Concomitant]
     Active Substance: METFORMIN HYDROCHLORIDE
     Indication: PRE-EXISTING DISEASE
     Dosage: 500 MG
     Route: 048
     Dates: start: 20190922
  3. SAXAGLIPTIN [Concomitant]
     Active Substance: SAXAGLIPTIN
     Indication: PRE-EXISTING DISEASE
     Dosage: 5 MG
     Route: 048
     Dates: start: 20190922
  4. FUROSEMIDE. [Concomitant]
     Active Substance: FUROSEMIDE
     Indication: CARDIAC FAILURE
     Dosage: 20 MG
     Route: 048
     Dates: start: 20190921
  5. DIGOXIN. [Concomitant]
     Active Substance: DIGOXIN
     Indication: CARDIAC FAILURE
     Dosage: 0.125 MG
     Route: 048
     Dates: start: 20190916
  6. LIGUSTRAZINE HYDROCHLORIDE [Concomitant]
     Active Substance: LIGUSTRAZINE HYDROCHLORIDE
     Indication: CARDIOVASCULAR DISORDER
     Dosage: 10 ML
     Route: 042
     Dates: start: 20200309, end: 20200310
  7. SALVIA MILTIORRHIZA [Concomitant]
     Active Substance: HERBALS
     Indication: CARDIOVASCULAR DISORDER
     Dosage: 10 ML, UNKNOWN
     Route: 042
     Dates: start: 20200309, end: 20200310
  8. BISOPROLOL FUMARATE. [Concomitant]
     Active Substance: BISOPROLOL FUMARATE
     Indication: CARDIAC FAILURE
     Dosage: 1.25 MG
     Route: 048
     Dates: start: 20190918

REACTIONS (6)
  - Arteriosclerosis [Not Recovered/Not Resolved]
  - Nephrolithiasis [Recovering/Resolving]
  - Carotid artery stenosis [Recovering/Resolving]
  - Diabetic gangrene [Not Recovered/Not Resolved]
  - Benign prostatic hyperplasia [Recovering/Resolving]
  - Hepatic cyst [Recovering/Resolving]

NARRATIVE: CASE EVENT DATE: 20200206
